FAERS Safety Report 24569807 (Version 1)
Quarter: 2024Q4

REPORT INFORMATION
  Report Type: Spontaneous
  Country: KR (occurrence: KR)
  Receive Date: 20241031
  Receipt Date: 20241031
  Transmission Date: 20250114
  Serious: Yes (Death)
  Sender: NOVARTIS
  Company Number: KR-002147023-NVSC2024KR211510

PATIENT
  Age: 66 Year
  Sex: Male

DRUGS (1)
  1. TABRECTA [Suspect]
     Active Substance: CAPMATINIB
     Indication: Product used for unknown indication
     Dosage: UNK
     Route: 065
     Dates: start: 20240222

REACTIONS (3)
  - Asthenia [Fatal]
  - Pleural effusion [Fatal]
  - Pericardial effusion [Fatal]

NARRATIVE: CASE EVENT DATE: 20240601
